FAERS Safety Report 7484259-2 (Version None)
Quarter: 2011Q2

REPORT INFORMATION
  Report Type: 
  Country: None (occurrence: None)
  Receive Date: 20110517
  Receipt Date: 20100927
  Transmission Date: 20111010
  Serious: Yes (Hospitalization)
  Sender: FDA-Public Use
  Company Number: US-BAYER-201037702NA

PATIENT
  Age: 39 Year
  Sex: Female
  Weight: 81 kg

DRUGS (11)
  1. MYLANTA [Concomitant]
  2. CHLOROTHIAZIDE [Concomitant]
  3. FLOVENT [Concomitant]
     Indication: ASTHMA
  4. CHLOROTHIAZIDE [Concomitant]
     Dosage: 500 MG (DAILY DOSE), ,
  5. ALBUTEROL [Concomitant]
     Indication: ASTHMA
     Dosage: 2 PUFFS AS NEEDED
  6. ALIMENTARY TRACT AND METABOLISM [Concomitant]
  7. LEVOTHYROXINE SODIUM [Concomitant]
     Dates: start: 20060101
  8. SYMBICORT [Concomitant]
     Indication: GASTRIC DISORDER
     Dosage: (TAKEN FOR 11 YEARS)
  9. YAZ [Suspect]
     Indication: ACNE
  10. YASMIN [Suspect]
     Indication: ACNE
     Route: 048
     Dates: start: 20040101, end: 20070101
  11. NEXIUM [Concomitant]
     Indication: GASTRIC DISORDER
     Dosage: 400 MG (DAILY DOSE), , ORAL
     Route: 048

REACTIONS (5)
  - BILIARY COLIC [None]
  - ABDOMINAL PAIN [None]
  - CHOLECYSTITIS [None]
  - BILIARY DYSKINESIA [None]
  - NAUSEA [None]
